FAERS Safety Report 16004764 (Version 1)
Quarter: 2019Q1

REPORT INFORMATION
  Report Type: Spontaneous
  Country: US (occurrence: US)
  Receive Date: 20190226
  Receipt Date: 20190226
  Transmission Date: 20190418
  Serious: Yes (Other)
  Sender: FDA-Public Use
  Company Number: US-TEVA-2019-US-1016921

PATIENT
  Age: 71 Year
  Sex: Male
  Weight: 69.4 kg

DRUGS (2)
  1. WARFARIN SODIUM. [Suspect]
     Active Substance: WARFARIN SODIUM
     Indication: ATRIAL FIBRILLATION
     Dosage: 4 MILLIGRAM DAILY; 4 MG ONE DAY, 2 MG THE NEXT DAY, AND SWITCH OFF EVERY OTHER DAY, TABLETS BY MOUTH
     Route: 048
     Dates: start: 20170310
  2. WARFARIN SODIUM. [Suspect]
     Active Substance: WARFARIN SODIUM
     Dosage: 2 MILLIGRAM DAILY; 4 MG ONE DAY, 2 MG THE NEXT DAY, AND SWITCH OFF EVERY OTHER DAY, TABLETS BY MOUTH
     Route: 048
     Dates: start: 20170310

REACTIONS (4)
  - Epistaxis [Not Recovered/Not Resolved]
  - Bleeding time prolonged [Not Recovered/Not Resolved]
  - Contusion [Not Recovered/Not Resolved]
  - Paraesthesia [Not Recovered/Not Resolved]

NARRATIVE: CASE EVENT DATE: 20170310
